FAERS Safety Report 5979953-6 (Version None)
Quarter: 2008Q4

REPORT INFORMATION
  Report Type: 
  Country: None (occurrence: None)
  Receive Date: 20081205
  Receipt Date: 20081127
  Transmission Date: 20090506
  Serious: Yes (Disabling)
  Sender: FDA-Public Use
  Company Number: DE-PURDUE-DEU_2008_0004869

PATIENT
  Sex: Female

DRUGS (1)
  1. OXYGESIC 5 MG [Suspect]
     Indication: PAIN
     Dosage: 5 MG, BID
     Route: 048
     Dates: start: 20060101, end: 20080101

REACTIONS (2)
  - DRUG INTOLERANCE [None]
  - TOOTH DISORDER [None]
